FAERS Safety Report 8531183-X (Version None)
Quarter: 2012Q3

REPORT INFORMATION
  Report Type: 
  Country: None (occurrence: None)
  Receive Date: 20120723
  Receipt Date: 20120709
  Transmission Date: 20120928
  Serious: Yes (Hospitalization, Other)
  Sender: FDA-Public Use
  Company Number: DE-ELI_LILLY_AND_COMPANY-DE201205008048

PATIENT
  Age: 51 Year
  Sex: Female

DRUGS (8)
  1. OLANZAPINE [Suspect]
     Dosage: 10 MG, QD
  2. BENZODIAZEPINE RELATED DRUGS [Concomitant]
  3. FLUPHENAZINE HCL [Concomitant]
  4. LEVOTHYROXINE SODIUM [Concomitant]
     Dosage: 25 UG, QD
  5. AMISULPRIDE [Concomitant]
  6. OLANZAPINE [Suspect]
     Dosage: 30 MG, SINGLE
  7. LORAZEPAM [Concomitant]
     Dosage: 5 MG, UNK
  8. OLANZAPINE [Suspect]
     Dosage: 20 MG, QD

REACTIONS (8)
  - CATATONIA [None]
  - OVERDOSE [None]
  - HYPOTHERMIA [None]
  - PROTEIN TOTAL ABNORMAL [None]
  - HYPOTHYROIDISM [None]
  - BLOOD CREATININE INCREASED [None]
  - HYPOPHAGIA [None]
  - BODY MASS INDEX DECREASED [None]
